FAERS Safety Report 5935172-0 (Version None)
Quarter: 2008Q4

REPORT INFORMATION
  Report Type: 
  Country: None (occurrence: None)
  Receive Date: 20081028
  Receipt Date: 20081013
  Transmission Date: 20090506
  Serious: Yes (Death)
  Sender: FDA-Public Use
  Company Number: 2008US002773

PATIENT

DRUGS (3)
  1. PROGRAF [Suspect]
     Indication: RENAL TRANSPLANT
  2. SIROLIMUS(SIROLIMUS) [Suspect]
     Indication: RENAL TRANSPLANT
     Dosage: 10 MG, UID/QD, ORAL, 6 MG, UID/QD, ORAL
     Route: 048
  3. PREDNISOLONE ACETATE [Suspect]
     Indication: RENAL TRANSPLANT

REACTIONS (1)
  - NEOPLASM MALIGNANT [None]
